FAERS Safety Report 6467163-8 (Version None)
Quarter: 2009Q4

REPORT INFORMATION
  Report Type: 
  Country: None (occurrence: None)
  Receive Date: 20091202
  Receipt Date: 20091130
  Transmission Date: 20100525
  Serious: Yes (Hospitalization, Other)
  Sender: FDA-Public Use
  Company Number: AU-BRISTOL-MYERS SQUIBB COMPANY-14875660

PATIENT
  Age: 45 Year
  Sex: Male

DRUGS (4)
  1. REYATAZ [Suspect]
  2. RITONAVIR [Suspect]
  3. BACTRIM [Suspect]
  4. TRUVADA [Suspect]

REACTIONS (3)
  - APPENDICITIS [None]
  - BLOOD BILIRUBIN INCREASED [None]
  - RASH [None]
